FAERS Safety Report 23454935 (Version 1)
Quarter: 2024Q1

REPORT INFORMATION
  Report Type: Spontaneous
  Country: US (occurrence: US)
  Receive Date: 20240130
  Receipt Date: 20240130
  Transmission Date: 20240409
  Serious: Yes (Other)
  Sender: FDA-Public Use
  Company Number: US-VIIV HEALTHCARE LIMITED-US2024011427

PATIENT

DRUGS (16)
  1. DOVATO [Suspect]
     Active Substance: DOLUTEGRAVIR SODIUM\LAMIVUDINE
     Indication: HIV infection
     Dosage: 1 DF, QD (50-300 MG)
     Route: 048
  2. CETIRIZINE [Concomitant]
     Active Substance: CETIRIZINE HYDROCHLORIDE
     Indication: Product used for unknown indication
     Dosage: 10 MG, QD
     Route: 048
  3. QVAR REDIHALER [Concomitant]
     Active Substance: BECLOMETHASONE DIPROPIONATE
     Indication: Product used for unknown indication
     Dosage: 1 PUFF(S), QD (80 MCG/ACT AEROSOL)
     Route: 055
  4. PROAIR HFA [Concomitant]
     Active Substance: ALBUTEROL SULFATE
     Indication: Product used for unknown indication
     Dosage: 1 PUFF(S), 6D (108 (90 BASE) MCG/ACT AEROSOL, AS NEEDED EVEY 4 HR)
     Route: 055
  5. DOXYCYCLINE [Concomitant]
     Active Substance: DOXYCYCLINE
     Indication: Product used for unknown indication
     Dosage: 2 DF, QD (24-72 HOURS AFTER UNPROTECTED SEX ONCE A DAY)
     Route: 048
     Dates: end: 20240107
  6. GARDASIL [Concomitant]
     Active Substance: HUMAN PAPILLOMAVIRUS QUADRIVALENT (TYPES 6, 11, 16, AND 18) VACCINE, RECOMBINANT
     Indication: Prophylaxis
     Dosage: UNK
  7. HEPATITIS A [Concomitant]
     Indication: Prophylaxis
     Dosage: UNK
  8. HEPLISAV B [Concomitant]
     Indication: Prophylaxis
     Dosage: UNK (NEEDS SECOND AND THIRD DOSES )
     Dates: start: 20220829
  9. TETANUS TOXOID, REDUCED DIPHTHERIA TOXOID AND ACELLULAR PERTUSSIS VACC [Concomitant]
     Active Substance: TETANUS TOXOID, REDUCED DIPHTHERIA TOXOID AND ACELLULAR PERTUSSIS VACCINE ADSORBED, TDAP
     Indication: Prophylaxis
     Dosage: UNK (NEXT ONE DUE 06/2030 )
     Dates: start: 202006
  10. PNEUMOCOCCAL 13-VALENT CONJUGATE VACCINE [Concomitant]
     Active Substance: PNEUMOCOCCAL 13-VALENT CONJUGATE VACCINE
     Indication: Prophylaxis
     Dosage: UNK
     Dates: start: 20200626
  11. PNEUMOCOCCAL VACCINE, POLYVALENT 23 [Concomitant]
     Active Substance: PNEUMOCOCCAL VACCINE, POLYVALENT 23
     Indication: Prophylaxis
     Dosage: UNK (DUE NOW, ORDERED)
  12. INFLUENZA VIRUS VACCINE [Concomitant]
     Active Substance: INFLUENZA VIRUS VACCINE
     Indication: Prophylaxis
     Dosage: UNK
     Dates: start: 2023
  13. MENINGOCOCCAL POLYSACCHARIDE VACCINE, GROUPS A, C, Y,W135 COMBINED [Concomitant]
     Active Substance: MENINGOCOCCAL POLYSACCHARIDE VACCINE, GROUPS A, C, Y,W135 COMBINED
     Indication: Prophylaxis
     Dosage: UNK (SECOND DOSE ORDERED )
     Dates: start: 20220829
  14. PFIZER-BIONTECH COVID-19 VACCINE [Concomitant]
     Active Substance: TOZINAMERAN
     Indication: Prophylaxis
     Dosage: UNK
     Dates: start: 202112
  15. MEASLES-MUMPS-RUBELLA VIRUS VACCINE [Concomitant]
     Active Substance: MEASLES-MUMPS-RUBELLA VIRUS VACCINE
     Indication: Prophylaxis
     Dosage: UNK
     Dates: start: 202311
  16. VARICELLA-ZOSTER VIRUS STRAIN OKA/MERCK LIVE ANTIGEN [Concomitant]
     Active Substance: VARICELLA-ZOSTER VIRUS STRAIN OKA/MERCK LIVE ANTIGEN
     Indication: Prophylaxis
     Dosage: UNK
     Dates: start: 20200807

REACTIONS (5)
  - Oropharyngeal gonococcal infection [Unknown]
  - Transaminases increased [Unknown]
  - Vitamin D deficiency [Unknown]
  - Blood alkaline phosphatase increased [Unknown]
  - Sexual transmission of infection [Unknown]
